FAERS Safety Report 15890807 (Version 2)
Quarter: 2019Q1

REPORT INFORMATION
  Report Type: Spontaneous
  Country: JP (occurrence: JP)
  Receive Date: 20190130
  Receipt Date: 20190225
  Transmission Date: 20190417
  Serious: Yes (Other)
  Sender: FDA-Public Use
  Company Number: JP-PFIZER INC-2019039066

PATIENT
  Age: 40 Year
  Sex: Male

DRUGS (2)
  1. NEUROTROPIN [Concomitant]
     Active Substance: NEUROTROPIN
     Dosage: UNK
  2. LYRICA [Suspect]
     Active Substance: PREGABALIN
     Indication: HYPOAESTHESIA
     Dosage: 25 MG, 1X/DAY
     Route: 048
     Dates: start: 201810, end: 2019

REACTIONS (4)
  - Visual acuity reduced [Unknown]
  - Off label use [Unknown]
  - Blindness unilateral [Unknown]
  - Diplopia [Unknown]

NARRATIVE: CASE EVENT DATE: 201812
